FAERS Safety Report 20438886 (Version 1)
Quarter: 2022Q1

REPORT INFORMATION
  Report Type: Spontaneous
  Country: US (occurrence: None)
  Receive Date: 20220204
  Receipt Date: 20220204
  Transmission Date: 20220423
  Serious: Yes (Hospitalization)
  Sender: FDA-Public Use
  Company Number: None

PATIENT
  Sex: Female

DRUGS (1)
  1. ZEJULA [Suspect]
     Active Substance: NIRAPARIB
     Indication: Ovarian cancer
     Dosage: 300MG ONCE DAILY ORAL
     Route: 048
     Dates: start: 20211229

REACTIONS (3)
  - Adverse drug reaction [None]
  - Platelet count decreased [None]
  - Neutrophil count decreased [None]
